FAERS Safety Report 22792440 (Version 3)
Quarter: 2024Q1

REPORT INFORMATION
  Report Type: Spontaneous
  Country: US (occurrence: US)
  Receive Date: 20230807
  Receipt Date: 20240208
  Transmission Date: 20240410
  Serious: No
  Sender: FDA-Public Use
  Company Number: US-GSK-US2023AMR103780

PATIENT
  Sex: Female

DRUGS (1)
  1. NUCALA [Suspect]
     Active Substance: MEPOLIZUMAB
     Indication: Hypereosinophilic syndrome
     Dosage: 300 MG, MO

REACTIONS (4)
  - Pruritus [Unknown]
  - Symptom recurrence [Unknown]
  - Exposure during pregnancy [Unknown]
  - Therapeutic product effect incomplete [Unknown]
